FAERS Safety Report 7094602-4 (Version None)
Quarter: 2010Q4

REPORT INFORMATION
  Report Type: 
  Country: None (occurrence: None)
  Receive Date: 20101110
  Receipt Date: 20101103
  Transmission Date: 20110411
  Serious: Yes (Other)
  Sender: FDA-Public Use
  Company Number: US-ROCHE-738999

PATIENT
  Sex: Female
  Weight: 65.5 kg

DRUGS (1)
  1. BONIVA [Suspect]
     Route: 048

REACTIONS (5)
  - COUGH [None]
  - DYSPHONIA [None]
  - GALLBLADDER OPERATION [None]
  - GASTROOESOPHAGEAL REFLUX DISEASE [None]
  - OESOPHAGEAL DISORDER [None]
